FAERS Safety Report 10209423 (Version 1)
Quarter: 2014Q2

REPORT INFORMATION
  Report Type: Spontaneous
  Country: US (occurrence: US)
  Receive Date: 20140601
  Receipt Date: 20140601
  Transmission Date: 20141212
  Serious: No
  Sender: FDA-Public Use
  Company Number: US-009507513-1405USA014587

PATIENT
  Age: 37 Year
  Sex: Female

DRUGS (2)
  1. ASMANEX TWISTHALER [Suspect]
     Indication: ASTHMA
     Dosage: DOSE/FREQUENCY: 220 MCG/^ONE PUFF ONCE
     Route: 055
     Dates: start: 201205
  2. SINGULAIR [Concomitant]

REACTIONS (4)
  - Wheezing [Not Recovered/Not Resolved]
  - Drug dose omission [Unknown]
  - Accidental exposure to product [Unknown]
  - Product quality issue [Unknown]
